FAERS Safety Report 7314393-9 (Version None)
Quarter: 2011Q1

REPORT INFORMATION
  Report Type: 
  Country: None (occurrence: None)
  Receive Date: 20110225
  Receipt Date: 20100830
  Transmission Date: 20110831
  Serious: No
  Sender: FDA-Public Use
  Company Number: US-MYLANLABS-2010S1014555

PATIENT
  Age: 16 Year
  Sex: Male
  Weight: 63.5 kg

DRUGS (1)
  1. AMNESTEEM [Suspect]
     Indication: ACNE
     Route: 048
     Dates: start: 20100525, end: 20100804

REACTIONS (2)
  - DYSPNOEA [None]
  - DYSPHAGIA [None]
